FAERS Safety Report 22185697 (Version 1)
Quarter: 2023Q2

REPORT INFORMATION
  Report Type: Spontaneous
  Country: CN (occurrence: CN)
  Receive Date: 20230407
  Receipt Date: 20230407
  Transmission Date: 20230721
  Serious: Yes (Other)
  Sender: FDA-Public Use
  Company Number: CN-AstraZeneca-2023A075825

PATIENT
  Age: 48 Year
  Sex: Male

DRUGS (1)
  1. METOPROLOL SUCCINATE [Suspect]
     Active Substance: METOPROLOL SUCCINATE
     Indication: Product used for unknown indication
     Dosage: 47.5 MG
     Route: 048

REACTIONS (4)
  - Nephrolithiasis [Unknown]
  - Blood pressure abnormal [Unknown]
  - Balance disorder [Unknown]
  - Drug ineffective [Unknown]
